FAERS Safety Report 9125323 (Version 1)
Quarter: 2013Q1

REPORT INFORMATION
  Report Type: Report from Study
  Country: US (occurrence: US)
  Receive Date: 20130117
  Receipt Date: 20130117
  Transmission Date: 20140127
  Serious: Yes (Hospitalization)
  Sender: FDA-Public Use
  Company Number: US-ABBOTT-13P-163-1033993-00

PATIENT
  Age: 38 None
  Sex: Male
  Weight: 113.5 kg

DRUGS (8)
  1. HUMIRA [Suspect]
     Indication: PSORIASIS
     Dosage: STARTED WITH LOADING DOSE
     Dates: start: 201201, end: 201202
  2. EFFEXOR [Concomitant]
     Indication: ANXIETY
  3. EFFEXOR [Concomitant]
     Indication: DEPRESSION
  4. NEITONI [Concomitant]
     Indication: ANXIETY
  5. CLONAZEPAM [Concomitant]
     Indication: ANXIETY
  6. METFORMIN [Concomitant]
     Indication: DIABETES MELLITUS
  7. ABILIFY [Concomitant]
     Indication: DEPRESSION
  8. MAXALT [Concomitant]
     Indication: MIGRAINE

REACTIONS (6)
  - Skin fissures [Recovering/Resolving]
  - Skin infection [Recovering/Resolving]
  - Psoriasis [Recovering/Resolving]
  - Psoriasis [Recovering/Resolving]
  - Psoriasis [Not Recovered/Not Resolved]
  - Pustular psoriasis [Unknown]
